FAERS Safety Report 17548612 (Version 1)
Quarter: 2020Q1

REPORT INFORMATION
  Report Type: Spontaneous
  Country: DE (occurrence: DE)
  Receive Date: 20200317
  Receipt Date: 20200317
  Transmission Date: 20200409
  Serious: Yes (Other)
  Sender: FDA-Public Use
  Company Number: NVSC2020DE064872

PATIENT
  Age: 1 Day
  Sex: Female
  Weight: 2.36 kg

DRUGS (7)
  1. PARACETAMOL [Concomitant]
     Active Substance: ACETAMINOPHEN
     Indication: FOETAL EXPOSURE DURING PREGNANCY
     Dosage: UNK
     Route: 064
  2. XANAFLU [Concomitant]
     Active Substance: INFLUENZA VIRUS VACCINE
     Indication: FOETAL EXPOSURE DURING PREGNANCY
     Dosage: UNK (0. - 38.5. GESTATIONAL WEEK)
     Route: 064
     Dates: start: 20180215, end: 20180215
  3. NASIC [Concomitant]
     Active Substance: DEXPANTHENOL\XYLOMETAZOLINE HYDROCHLORIDE
     Indication: FOETAL EXPOSURE DURING PREGNANCY
     Dosage: UNK
     Route: 064
  4. L-THYROXINE [Concomitant]
     Active Substance: LEVOTHYROXINE
     Indication: FOETAL EXPOSURE DURING PREGNANCY
     Dosage: 100 UG, QD (0. - 38.5. GESTATIONAL WEEK)
     Route: 064
     Dates: start: 20171011, end: 20180709
  5. METOPROLOL. [Suspect]
     Active Substance: METOPROLOL
     Indication: FOETAL EXPOSURE DURING PREGNANCY
     Dosage: MOTHER^S DOSE: 50 MG, QD (0. - 38.5. GESTATIONAL WEEK)
     Route: 064
     Dates: start: 20171011, end: 20180709
  6. VENLAFAXINE [Suspect]
     Active Substance: VENLAFAXINE HYDROCHLORIDE
     Indication: FOETAL EXPOSURE DURING PREGNANCY
     Dosage: MOTHER^S DOSE: 75 MG, QD (9. - 38.5. GESTATIONAL WEEK)
     Route: 064
     Dates: start: 20171011, end: 20180709
  7. MAGNESIUM [Concomitant]
     Active Substance: MAGNESIUM
     Indication: FOETAL EXPOSURE DURING PREGNANCY
     Dosage: UNK (2.5 [MMOL/D ODER B.BED]/ IF REQUIRED)
     Route: 064

REACTIONS (6)
  - Small for dates baby [Recovered/Resolved]
  - Microcephaly [Unknown]
  - Transient tachypnoea of the newborn [Recovered/Resolved]
  - Selective eating disorder [Recovered/Resolved]
  - Foetal exposure during pregnancy [Unknown]
  - Congenital choroid plexus cyst [Unknown]

NARRATIVE: CASE EVENT DATE: 20180709
